FAERS Safety Report 5154858-1 (Version None)
Quarter: 2006Q4

REPORT INFORMATION
  Report Type: 
  Country: None (occurrence: None)
  Receive Date: 20061121
  Receipt Date: 20061006
  Transmission Date: 20070319
  Serious: Yes (Other)
  Sender: FDA-Public Use
  Company Number: US-BAYER-200614255BCC

PATIENT
  Age: 79 Year
  Sex: Male

DRUGS (4)
  1. ALEVE [Suspect]
     Indication: THROMBOSIS
     Dosage: TOTAL DAILY DOSE: 220 MG  UNIT DOSE: 220 MG
     Route: 048
  2. COUMADIN [Suspect]
  3. ANTIHYPERTENSIVE MEDICATION [Concomitant]
  4. SIMVASTATIN [Concomitant]

REACTIONS (4)
  - BLOOD DISORDER [None]
  - COAGULATION TIME SHORTENED [None]
  - DRUG LEVEL FLUCTUATING [None]
  - THROMBOSIS [None]
